FAERS Safety Report 6234622-2 (Version None)
Quarter: 2009Q2

REPORT INFORMATION
  Report Type: 
  Country: None (occurrence: None)
  Receive Date: 20090615
  Receipt Date: 20090609
  Transmission Date: 20091009
  Serious: Yes (Life-Threatening, Hospitalization)
  Sender: FDA-Public Use
  Company Number: DE-WYE-G03819609

PATIENT
  Age: 77 Year
  Sex: Male

DRUGS (8)
  1. TYGACIL [Suspect]
     Indication: ABDOMINAL INFECTION
     Dosage: 50 MG 1X PER 12 HR INTRAVENOUS; 100 MG 1X PER 1 DAY, INTRAVENOUS
     Route: 042
     Dates: start: 20090518, end: 20090518
  2. TYGACIL [Suspect]
     Indication: ABDOMINAL INFECTION
     Dosage: 50 MG 1X PER 12 HR INTRAVENOUS; 100 MG 1X PER 1 DAY, INTRAVENOUS
     Route: 042
     Dates: start: 20090519, end: 20090525
  3. ENOXAPARIN SODIUM [Concomitant]
  4. ARTERENOL (NOREPHINEPHRINE HYDROCHLORIDE) [Concomitant]
  5. METOPROLOL SUCCINATE [Concomitant]
  6. CEFAZOLIN [Concomitant]
  7. METRONIDAZOLE (METRONIDAZOLE) [Concomitant]
  8. DIFLUCAN [Concomitant]

REACTIONS (10)
  - BLOOD CREATININE INCREASED [None]
  - C-REACTIVE PROTEIN INCREASED [None]
  - DRUG INEFFECTIVE [None]
  - ESCHERICHIA INFECTION [None]
  - GAMMA-GLUTAMYLTRANSFERASE INCREASED [None]
  - GENERAL PHYSICAL HEALTH DETERIORATION [None]
  - HAEMOGLOBIN DECREASED [None]
  - PROTEUS INFECTION [None]
  - STAPHYLOCOCCAL INFECTION [None]
  - WHITE BLOOD CELL COUNT INCREASED [None]
